FAERS Safety Report 9552138 (Version 1)
Quarter: 2013Q3

REPORT INFORMATION
  Report Type: Spontaneous
  Country: US (occurrence: None)
  Receive Date: 20130724
  Receipt Date: 20130724
  Transmission Date: 20140515
  Serious: Yes (Other)
  Sender: FDA-Public Use
  Company Number: PHEH2012US014385

PATIENT
  Age: 53 Year
  Sex: Female
  Weight: 73.9 kg

DRUGS (7)
  1. GLEEVEC (IMATINIB)UNKNOWN [Suspect]
     Indication: SOFT TISSUE CANCER
     Route: 048
     Dates: start: 20111214, end: 20120425
  2. FISH OIL (FISH OIL) [Concomitant]
  3. BIOTIN (BIOTIN) [Concomitant]
  4. VITAMIN E (TOCOPHEROL) [Concomitant]
  5. VITAMIN D (ERGOCALCIFEROL) [Concomitant]
  6. CALCIUM (CALCIUM) [Concomitant]
  7. SYNTHROID (LEVOTHYROXINE SODIUM) [Concomitant]

REACTIONS (1)
  - Pericarditis [None]
